FAERS Safety Report 4774909-3 (Version None)
Quarter: 2005Q3

REPORT INFORMATION
  Report Type: 
  Country: None (occurrence: None)
  Receive Date: 20050921
  Receipt Date: 20050909
  Transmission Date: 20060218
  Serious: Yes (Hospitalization)
  Sender: FDA-Public Use
  Company Number: US-BRISTOL-MYERS SQUIBB COMPANY-13106513

PATIENT
  Age: 65 Year
  Sex: Female
  Weight: 73 kg

DRUGS (11)
  1. TAXOL [Suspect]
     Indication: OVARIAN CANCER
     Route: 042
     Dates: start: 20030810, end: 20030810
  2. CARBOPLATIN [Suspect]
     Indication: OVARIAN CANCER
     Route: 042
     Dates: start: 20030810, end: 20030810
  3. BENADRYL [Concomitant]
     Indication: PREMEDICATION
     Route: 042
  4. CIMETIDINE [Concomitant]
     Indication: PREMEDICATION
     Route: 042
  5. KYTRIL [Concomitant]
     Indication: PREMEDICATION
     Route: 042
  6. DECADRON [Concomitant]
     Indication: PREMEDICATION
     Route: 042
  7. LISINOPRIL [Concomitant]
  8. SYNTHROID [Concomitant]
  9. MOTRIN [Concomitant]
  10. DARVOCET-N 100 [Concomitant]
  11. NEULASTA [Concomitant]
     Dates: start: 20050904

REACTIONS (3)
  - COLITIS [None]
  - DIARRHOEA [None]
  - RECTAL HAEMORRHAGE [None]
